FAERS Safety Report 9259940 (Version 1)
Quarter: 2013Q2

REPORT INFORMATION
  Report Type: Report from Study
  Country: US (occurrence: US)
  Receive Date: 20130429
  Receipt Date: 20130429
  Transmission Date: 20140414
  Serious: Yes (Death, Hospitalization)
  Sender: FDA-Public Use
  Company Number: US-JNJFOC-20130102454

PATIENT
  Age: 71 Year
  Sex: Male
  Weight: 66.23 kg

DRUGS (3)
  1. ZYTIGA [Suspect]
     Indication: PROSTATE CANCER
     Route: 048
     Dates: start: 20120207
  2. OXYCONTIN [Concomitant]
     Indication: PAIN
     Route: 065
  3. TAXOTERE [Concomitant]
     Route: 065

REACTIONS (3)
  - Prostate cancer [Fatal]
  - Performance status decreased [Not Recovered/Not Resolved]
  - Subdural haematoma [Unknown]
